FAERS Safety Report 11930374 (Version 2)
Quarter: 2016Q1

REPORT INFORMATION
  Report Type: Spontaneous
  Country: IT (occurrence: IT)
  Receive Date: 20160120
  Receipt Date: 20160126
  Transmission Date: 20160526
  Serious: Yes (Other)
  Sender: FDA-Public Use
  Company Number: IT-PFIZER INC-2016019452

PATIENT
  Age: 49 Year
  Sex: Female

DRUGS (2)
  1. AUGMENTIN [Suspect]
     Active Substance: AMOXICILLIN\CLAVULANATE POTASSIUM
     Indication: VAGINITIS BACTERIAL
     Dosage: 2 DF, 1X/DAY FOR 7 DAYS
     Route: 048
  2. CLEOCIN [Suspect]
     Active Substance: CLINDAMYCIN PHOSPHATE
     Dosage: UNK, 1X/DAY
     Route: 061

REACTIONS (1)
  - Dysentery [Unknown]

NARRATIVE: CASE EVENT DATE: 20151204
